FAERS Safety Report 9230095 (Version 4)
Quarter: 2013Q2

REPORT INFORMATION
  Report Type: Spontaneous
  Country: US (occurrence: US)
  Receive Date: 20130415
  Receipt Date: 20130513
  Transmission Date: 20140414
  Serious: Yes (Hospitalization)
  Sender: FDA-Public Use
  Company Number: US-JNJFOC-20130111530

PATIENT
  Age: 69 Year
  Sex: Female
  Weight: 90.72 kg

DRUGS (16)
  1. XARELTO [Suspect]
     Indication: THROMBOSIS
     Dosage: 30 MG TABLET
     Route: 048
     Dates: start: 20130212, end: 20130302
  2. XARELTO [Suspect]
     Indication: THROMBOSIS
     Route: 048
     Dates: start: 20130114, end: 20130116
  3. ASPIRIN [Concomitant]
     Route: 048
  4. PLAVIX [Concomitant]
     Route: 048
  5. LIPITOR [Concomitant]
     Indication: BLOOD CHOLESTEROL
     Route: 048
  6. MONTELUKAST [Concomitant]
     Indication: MULTIPLE ALLERGIES
     Route: 065
  7. LORATAB [Concomitant]
     Dosage: 1/2 TABLET AS NEEDED
     Route: 048
  8. ALBUTEROL [Concomitant]
     Route: 065
  9. ULORIC [Concomitant]
     Indication: GOUT
     Route: 065
  10. CALTRATE WITH VITAMIN D [Concomitant]
     Route: 065
  11. SYMBICORT [Concomitant]
     Indication: CHRONIC OBSTRUCTIVE PULMONARY DISEASE
     Route: 065
  12. XANAX [Concomitant]
     Route: 065
  13. APRESOLINE [Concomitant]
     Indication: CARDIAC DISORDER
     Route: 065
  14. PROTONIX [Concomitant]
     Indication: GASTRIC DISORDER
     Route: 065
  15. BENICAR [Concomitant]
     Indication: BLOOD PRESSURE
     Route: 065
  16. PREDNISONE [Concomitant]
     Indication: CHRONIC OBSTRUCTIVE PULMONARY DISEASE
     Route: 065

REACTIONS (3)
  - Haematochezia [Recovered/Resolved]
  - Haemorrhage [Recovered/Resolved]
  - Adverse event [Not Recovered/Not Resolved]
